FAERS Safety Report 4623693-2 (Version None)
Quarter: 2005Q1

REPORT INFORMATION
  Report Type: 
  Country: None (occurrence: None)
  Receive Date: 20050329
  Receipt Date: 20050316
  Transmission Date: 20050727
  Serious: Yes (Other)
  Sender: FDA-Public Use
  Company Number: 2005047087

PATIENT
  Age: 34 Year
  Sex: Female

DRUGS (1)
  1. AZULFIDINE [Suspect]
     Indication: COLITIS ULCERATIVE
     Dosage: ORAL
     Route: 048
     Dates: start: 20040918

REACTIONS (3)
  - COLITIS ULCERATIVE [None]
  - DEEP VEIN THROMBOSIS [None]
  - DRUG HYPERSENSITIVITY [None]
